FAERS Safety Report 10498545 (Version 3)
Quarter: 2014Q4

REPORT INFORMATION
  Report Type: Spontaneous
  Country: US (occurrence: US)
  Receive Date: 20141006
  Receipt Date: 20141204
  Transmission Date: 20150528
  Serious: Yes (Hospitalization)
  Sender: FDA-Public Use
  Company Number: US-BAYER-2014-147466

PATIENT
  Age: 32 Year
  Sex: Female
  Weight: 96.15 kg

DRUGS (1)
  1. MIRENA [Suspect]
     Active Substance: LEVONORGESTREL
     Indication: CONTRACEPTION
     Dosage: 20 MCG/24HR, CONT
     Route: 015
     Dates: start: 20101214, end: 201410

REACTIONS (4)
  - Abdominal pain [None]
  - Drug ineffective [None]
  - Abortion missed [None]
  - Pregnancy with contraceptive device [None]

NARRATIVE: CASE EVENT DATE: 201408
